FAERS Safety Report 9765061 (Version 1)
Quarter: 2013Q4

REPORT INFORMATION
  Report Type: Spontaneous
  Country: CA (occurrence: CA)
  Receive Date: 20131217
  Receipt Date: 20131217
  Transmission Date: 20140711
  Serious: Yes (Other)
  Sender: FDA-Public Use
  Company Number: CA-ELI_LILLY_AND_COMPANY-CA201312002388

PATIENT
  Age: 84 Year
  Sex: Male

DRUGS (2)
  1. HUMALOG 25% LISPRO, 75% NPL [Suspect]
     Indication: DIABETES MELLITUS
     Dosage: 16 U, BID
     Route: 065
     Dates: start: 201309
  2. METFORMIN [Concomitant]
     Dosage: 1 DF, BID
     Route: 048

REACTIONS (1)
  - Blindness [Not Recovered/Not Resolved]
